FAERS Safety Report 15920938 (Version 1)
Quarter: 2019Q1

REPORT INFORMATION
  Report Type: Spontaneous
  Country: IT (occurrence: IT)
  Receive Date: 20190205
  Receipt Date: 20190205
  Transmission Date: 20190417
  Serious: Yes (Hospitalization)
  Sender: FDA-Public Use
  Company Number: PHHY2019IT024747

PATIENT
  Age: 77 Year
  Sex: Male

DRUGS (2)
  1. ACETYLSALICYLIC ACID [Suspect]
     Active Substance: ASPIRIN
     Indication: THROMBOSIS PROPHYLAXIS
     Dosage: 100 MG, QD
     Route: 048
     Dates: start: 20170101, end: 20180202
  2. DICLOREUM [Suspect]
     Active Substance: DICLOFENAC SODIUM
     Indication: ARTHRALGIA
     Dosage: UNK
     Route: 048

REACTIONS (5)
  - Gastric ulcer [Recovering/Resolving]
  - Faeces discoloured [Recovering/Resolving]
  - Abdominal pain upper [Recovering/Resolving]
  - Melaena [Recovering/Resolving]
  - Anaemia [Recovering/Resolving]

NARRATIVE: CASE EVENT DATE: 20180131
